FAERS Safety Report 26186294 (Version 1)
Quarter: 2025Q4

REPORT INFORMATION
  Report Type: Spontaneous
  Country: US (occurrence: None)
  Receive Date: 20251221
  Receipt Date: 20251221
  Transmission Date: 20260117
  Serious: Yes (Hospitalization)
  Sender: FDA-CTU
  Company Number: None

PATIENT
  Age: 50 Year
  Sex: Female
  Weight: 90 kg

DRUGS (1)
  1. CYANOCOBALAMIN\MINOXIDIL [Suspect]
     Active Substance: CYANOCOBALAMIN\MINOXIDIL
     Indication: Alopecia
     Dates: start: 20250901, end: 20251125

REACTIONS (6)
  - Tachycardia [None]
  - Tunnel vision [None]
  - Hypotension [None]
  - Dyspnoea [None]
  - Troponin increased [None]
  - Cardiac disorder [None]

NARRATIVE: CASE EVENT DATE: 20251125
